FAERS Safety Report 7268544-5 (Version None)
Quarter: 2010Q4

REPORT INFORMATION
  Report Type: 
  Country: None (occurrence: None)
  Receive Date: 20101206
  Receipt Date: 20101020
  Transmission Date: 20110411
  Serious: No
  Sender: FDA-Public Use
  Company Number: 2010SP056114

PATIENT
  Age: 102 Year
  Sex: Male

DRUGS (8)
  1. SAPHRIS [Suspect]
     Indication: BIPOLAR DISORDER
     Dosage: 10 MG, BID, SL
     Route: 060
     Dates: start: 20101020
  2. DEPAKOTE ER [Concomitant]
  3. BENAZEPRIL [Concomitant]
  4. ZOCOR [Concomitant]
  5. METFORMIN HYDROCHLORIDE [Concomitant]
  6. HYDRALAZINE [Concomitant]
  7. HYDROCHLOROTHIAZIDE [Concomitant]
  8. NORVASC [Concomitant]

REACTIONS (2)
  - DYSGEUSIA [None]
  - HYPOAESTHESIA ORAL [None]
